FAERS Safety Report 9728342 (Version 2)
Quarter: 2013Q4

REPORT INFORMATION
  Report Type: Spontaneous
  Country: US (occurrence: US)
  Receive Date: 20131204
  Receipt Date: 20131204
  Transmission Date: 20140711
  Serious: Yes (Other)
  Sender: FDA-Public Use
  Company Number: PHHY2013US138728

PATIENT
  Sex: Female
  Weight: 88.44 kg

DRUGS (8)
  1. GILENYA [Suspect]
     Indication: MULTIPLE SCLEROSIS
     Dosage: 0.5 MG, QD
     Route: 048
     Dates: start: 20130308
  2. MIRTAZAPINE [Concomitant]
     Dosage: 15 MG, UNK
  3. DIOVAN [Concomitant]
     Dosage: 160 MG, UNK
  4. ZANAFLEX [Concomitant]
     Dosage: 2 MG, UNK
  5. VITAMIN D [Concomitant]
  6. VITAMIN B12 [Concomitant]
  7. MULTI-VIT [Concomitant]
  8. Z-PAK [Concomitant]

REACTIONS (1)
  - Concussion [Unknown]
